FAERS Safety Report 4337766-5 (Version None)
Quarter: 2004Q2

REPORT INFORMATION
  Report Type: 
  Country: None (occurrence: None)
  Receive Date: 20040413
  Receipt Date: 20040402
  Transmission Date: 20050107
  Serious: Yes (Death)
  Sender: FDA-Public Use
  Company Number: PHEH2004US03825

PATIENT
  Age: 81 Year
  Sex: Female

DRUGS (1)
  1. CLOZARIL [Suspect]
     Indication: PARKINSON'S DISEASE
     Dosage: 150 MG, UNK
     Route: 048
     Dates: start: 19960420, end: 20040321

REACTIONS (1)
  - PARKINSON'S DISEASE [None]
